FAERS Safety Report 6074280-3 (Version None)
Quarter: 2009Q1

REPORT INFORMATION
  Report Type: 
  Country: None (occurrence: None)
  Receive Date: 20090211
  Receipt Date: 20090112
  Transmission Date: 20090719
  Serious: No
  Sender: FDA-Public Use
  Company Number: US-BAYER-200910128BCC

PATIENT
  Age: 87 Year
  Sex: Female
  Weight: 43 kg

DRUGS (3)
  1. ALEVE [Suspect]
     Indication: MYALGIA
     Dosage: TOTAL DAILY DOSE: 440 MG  UNIT DOSE: 220 MG
     Dates: start: 20090111
  2. DARVOCET [Concomitant]
  3. GLUCOSAMINE [Concomitant]

REACTIONS (1)
  - INITIAL INSOMNIA [None]
